FAERS Safety Report 8922949 (Version 1)
Quarter: 2012Q4

REPORT INFORMATION
  Report Type: 
  Country: JP (occurrence: JP)
  Receive Date: 20121123
  Receipt Date: 20121123
  Transmission Date: 20130627
  Serious: Yes (Hospitalization)
  Sender: FDA-Public Use
  Company Number: PHHY2012JP059758

PATIENT
  Age: 46 Year
  Sex: Male
  Weight: 98 kg

DRUGS (15)
  1. TEGRETOL [Suspect]
     Indication: BIPOLAR DISORDER
     Dosage: 300 mg, Daily
     Route: 048
     Dates: start: 20100816, end: 20100902
  2. ALLOPURINOL [Suspect]
     Indication: HYPERURICAEMIA
     Dosage: 100 mg, Daily
     Route: 048
     Dates: start: 20080917, end: 20101025
  3. TAIPROTON [Concomitant]
     Indication: GASTRIC ULCER
     Dosage: 15 mg, UNK
     Route: 048
     Dates: start: 20080317, end: 20101025
  4. LIVALO [Concomitant]
     Indication: HYPERLIPIDAEMIA
     Dosage: 2 mg, UNK
     Route: 048
     Dates: start: 20090426, end: 20101025
  5. MELBIN [Concomitant]
     Indication: DIABETES MELLITUS
     Dosage: 500 mg, UNK
     Route: 048
     Dates: start: 20091125, end: 20101025
  6. KINESTAT [Concomitant]
     Indication: DIABETES MELLITUS
     Dosage: 150 mg, UNK
     Route: 048
     Dates: start: 20091125, end: 20101025
  7. CIRUMIMERU [Concomitant]
     Indication: DIABETES MELLITUS
     Dosage: 300 mg, UNK
     Route: 048
     Dates: start: 20100610, end: 20101025
  8. EURODIN [Concomitant]
     Indication: BIPOLAR DISORDER
     Dosage: 2 mg, UNK
     Route: 048
     Dates: start: 20080401, end: 20100902
  9. RIVOTRIL [Concomitant]
     Indication: BIPOLAR DISORDER
     Dosage: 1.5 mg, UNK
     Route: 048
     Dates: start: 20080422, end: 20100902
  10. BI_SIFROL [Concomitant]
     Indication: BIPOLAR DISORDER
     Dosage: 0.25 mg, UNK
     Route: 048
     Dates: start: 20090725, end: 20100902
  11. LITHIUM CARBONATE [Concomitant]
     Indication: BIPOLAR DISORDER
     Dosage: 800 mg, UNK
     Route: 048
     Dates: start: 20090612, end: 20100902
  12. ISOMYTAL [Concomitant]
     Indication: BIPOLAR DISORDER
     Dosage: 0.2 mg, UNK
     Route: 048
     Dates: start: 20100118, end: 20100902
  13. BROVARIN [Concomitant]
     Indication: BIPOLAR DISORDER
     Dosage: 0.5 mg, UNK
     Route: 048
     Dates: start: 20100118, end: 20100902
  14. ABILIFY [Concomitant]
     Indication: BIPOLAR DISORDER
     Dosage: 6 mg, UNK
     Route: 048
     Dates: start: 20100614, end: 20100902
  15. RISPERDAL [Concomitant]
     Indication: BIPOLAR DISORDER
     Dosage: 2 mg, UNK
     Route: 048
     Dates: start: 20100614, end: 20100902

REACTIONS (18)
  - Drug reaction with eosinophilia and systemic symptoms [Recovering/Resolving]
  - Rash generalised [Recovering/Resolving]
  - Eczema [Recovering/Resolving]
  - Conjunctival hyperaemia [Recovering/Resolving]
  - Oedema mucosal [Recovering/Resolving]
  - Lymphadenopathy [Recovering/Resolving]
  - Rash [Recovering/Resolving]
  - Pyrexia [Recovering/Resolving]
  - Drug eruption [Recovering/Resolving]
  - Gamma-glutamyltransferase increased [Recovering/Resolving]
  - Blood lactate dehydrogenase increased [Recovering/Resolving]
  - Nasopharyngitis [Recovering/Resolving]
  - Measles [Recovering/Resolving]
  - Sepsis [Recovering/Resolving]
  - Human herpes virus 6 serology positive [Recovering/Resolving]
  - Aspartate aminotransferase increased [Recovering/Resolving]
  - Alanine aminotransferase increased [Recovering/Resolving]
  - Blood alkaline phosphatase increased [Recovering/Resolving]
